FAERS Safety Report 8518526-8 (Version None)
Quarter: 2012Q3

REPORT INFORMATION
  Report Type: 
  Country: None (occurrence: None)
  Receive Date: 20120718
  Receipt Date: 20120712
  Transmission Date: 20120928
  Serious: Yes (Hospitalization)
  Sender: FDA-Public Use
  Company Number: US-GILEAD-2012-0055385

PATIENT
  Sex: Male

DRUGS (1)
  1. LETAIRIS [Suspect]
     Indication: PULMONARY HYPERTENSION
     Dosage: 5 MG, UNK
     Route: 048
     Dates: start: 20120425, end: 20120517

REACTIONS (9)
  - DIABETES MELLITUS [None]
  - BLOOD PRESSURE INCREASED [None]
  - OXYGEN SATURATION DECREASED [None]
  - TROPONIN INCREASED [None]
  - CARDIAC FAILURE CONGESTIVE [None]
  - FLUID RETENTION [None]
  - RENAL IMPAIRMENT [None]
  - UNEVALUABLE EVENT [None]
  - BLOOD GLUCOSE INCREASED [None]
